FAERS Safety Report 6066185-9 (Version None)
Quarter: 2009Q1

REPORT INFORMATION
  Report Type: 
  Country: None (occurrence: None)
  Receive Date: 20090205
  Receipt Date: 20090128
  Transmission Date: 20090719
  Serious: Yes (Hospitalization)
  Sender: FDA-Public Use
  Company Number: PHHY2009FR03198

PATIENT
  Sex: Female

DRUGS (8)
  1. EXFORGE [Suspect]
     Indication: HYPERTENSION
     Dosage: UNK
     Route: 048
     Dates: end: 20080416
  2. VALSARTAN [Suspect]
     Indication: HYPERTENSION
     Dosage: UNK
     Route: 048
     Dates: end: 20080416
  3. FLUDEX [Suspect]
     Indication: HYPERTENSION
     Dosage: UNK
     Route: 048
     Dates: end: 20080416
  4. FRACTAL [Concomitant]
     Dosage: UNK
     Route: 048
     Dates: end: 20080416
  5. TEMERIT [Concomitant]
     Indication: HYPERTENSION
     Dosage: 5 MG, DAILY
     Route: 048
     Dates: start: 20080301
  6. TEMERIT [Concomitant]
     Dosage: 2.5 MG, DAILY
     Route: 048
  7. KARDEGIC [Concomitant]
     Dosage: UNK
     Route: 048
  8. ESOMEPRAZOLE MAGNESIUM [Concomitant]
     Dosage: UNK
     Route: 065

REACTIONS (9)
  - BLOOD CREATININE INCREASED [None]
  - DIARRHOEA [None]
  - GASTROENTERITIS [None]
  - HYPERHIDROSIS [None]
  - HYPOTENSION [None]
  - LOSS OF CONSCIOUSNESS [None]
  - MALAISE [None]
  - RENAL FAILURE [None]
  - VISUAL IMPAIRMENT [None]
